FAERS Safety Report 7476352-5 (Version None)
Quarter: 2011Q2

REPORT INFORMATION
  Report Type: 
  Country: None (occurrence: None)
  Receive Date: 20110512
  Receipt Date: 20110503
  Transmission Date: 20111010
  Serious: Yes (Hospitalization)
  Sender: FDA-Public Use
  Company Number: A0889303A

PATIENT
  Age: 36 Year
  Sex: Male
  Weight: 88.9 kg

DRUGS (6)
  1. CRESTOR [Concomitant]
  2. AVANDIA [Suspect]
     Indication: DIABETES MELLITUS
     Route: 048
     Dates: start: 20060101, end: 20080101
  3. METFORMIN HCL [Concomitant]
  4. THALITONE [Concomitant]
  5. ASPIRIN [Concomitant]
  6. LANTUS [Concomitant]

REACTIONS (3)
  - MYOCARDIAL INFARCTION [None]
  - CARDIAC ARREST [None]
  - RESUSCITATION [None]
